FAERS Safety Report 4471360-0 (Version None)
Quarter: 2004Q4

REPORT INFORMATION
  Report Type: 
  Country: None (occurrence: None)
  Receive Date: 20041006
  Receipt Date: 20040929
  Transmission Date: 20050328
  Serious: Yes (Hospitalization, Other)
  Sender: FDA-Public Use
  Company Number: 2004UW20510

PATIENT
  Age: 24 Year
  Sex: Female

DRUGS (3)
  1. ARIMIDEX [Suspect]
     Dosage: 1 MG HS PO
     Route: 048
  2. LAMICTAL [Concomitant]
  3. FOLIC ACID [Concomitant]

REACTIONS (2)
  - CONVULSION [None]
  - MEDICATION ERROR [None]
